FAERS Safety Report 5007711-8 (Version None)
Quarter: 2006Q2

REPORT INFORMATION
  Report Type: 
  Country: None (occurrence: None)
  Receive Date: 20060517
  Receipt Date: 20060508
  Transmission Date: 20061013
  Serious: Yes (Other)
  Sender: FDA-Public Use
  Company Number: 2006061702

PATIENT
  Age: 61 Year
  Sex: Male
  Weight: 80.7403 kg

DRUGS (13)
  1. NORVASC [Suspect]
     Indication: HYPERTENSION
     Dosage: 10 MG (5 MG, 2 IN 1 D)
  2. TIAZAC [Concomitant]
  3. NITROGLYCERIN [Concomitant]
  4. PRILOSEC [Concomitant]
  5. BENTYL [Concomitant]
  6. SERAX [Concomitant]
  7. CELEXA [Concomitant]
  8. ASPIRIN [Concomitant]
  9. TOPROL-XL [Concomitant]
  10. ACTOS [Concomitant]
  11. ZOCOR [Concomitant]
  12. ZETIA [Concomitant]
  13. LISINOPRIL [Concomitant]

REACTIONS (4)
  - BLOOD PRESSURE INCREASED [None]
  - BREAST MASS [None]
  - NEOPLASM [None]
  - TREATMENT NONCOMPLIANCE [None]
